APPROVED DRUG PRODUCT: COLESEVELAM HYDROCHLORIDE
Active Ingredient: COLESEVELAM HYDROCHLORIDE
Strength: 1.875GM/PACKET
Dosage Form/Route: FOR SUSPENSION;ORAL
Application: A202190 | Product #001
Applicant: GLENMARK PHARMACEUTICALS LTD
Approved: Jul 16, 2018 | RLD: No | RS: No | Type: RX